FAERS Safety Report 20331729 (Version 2)
Quarter: 2022Q1

REPORT INFORMATION
  Report Type: Spontaneous
  Country: CO (occurrence: CO)
  Receive Date: 20220113
  Receipt Date: 20220308
  Transmission Date: 20220423
  Serious: No
  Sender: FDA-Public Use
  Company Number: CO-PFIZER INC-202101820721

PATIENT
  Sex: Male

DRUGS (1)
  1. GENOTROPIN [Suspect]
     Active Substance: SOMATROPIN
     Dosage: 0.8 MG, DAILY
     Route: 058
     Dates: start: 2017

REACTIONS (4)
  - Device failure [Unknown]
  - Intentional device misuse [Unknown]
  - Product dose omission issue [Unknown]
  - Expired device used [Unknown]

NARRATIVE: CASE EVENT DATE: 20210101
